FAERS Safety Report 22228814 (Version 6)
Quarter: 2024Q2

REPORT INFORMATION
  Report Type: Report from Study
  Country: NL (occurrence: NL)
  Receive Date: 20230419
  Receipt Date: 20240402
  Transmission Date: 20240715
  Serious: Yes (Other)
  Sender: FDA-Public Use
  Company Number: NL-ABBVIE-4734018

PATIENT
  Sex: Male
  Weight: 76 kg

DRUGS (11)
  1. CARBIDOPA\LEVODOPA [Suspect]
     Active Substance: CARBIDOPA\LEVODOPA
     Indication: Parkinson^s disease
     Dosage: MD 3.0 ML; CD 3.7 ML/H; ED 2.0 ML
     Route: 050
     Dates: start: 20240109, end: 20240327
  2. CARBIDOPA\LEVODOPA [Suspect]
     Active Substance: CARBIDOPA\LEVODOPA
     Dosage: MD 9.0 ML; CD 4.0 ML/H; ED 2.0 ML/REMAINS AT 16 HOURS?DURATION TEXT: REMAINS AT 16 HOURS
     Route: 050
  3. CARBIDOPA\LEVODOPA [Suspect]
     Active Substance: CARBIDOPA\LEVODOPA
     Route: 050
     Dates: start: 20201116
  4. CARBIDOPA\LEVODOPA [Suspect]
     Active Substance: CARBIDOPA\LEVODOPA
     Dosage: MD 9.0 ML; CD 3.8 ML/H; ED 2.0 ML/REMAINS AT 16 HOURS?DURATION TEXT: REMAINS AT 16 HOURS
     Route: 050
  5. CARBIDOPA\LEVODOPA [Suspect]
     Active Substance: CARBIDOPA\LEVODOPA
     Dosage: MD 9.0 ML; CD 3.7 ML/H; ED 2.0 ML
     Route: 050
  6. CARBIDOPA\LEVODOPA [Suspect]
     Active Substance: CARBIDOPA\LEVODOPA
     Dosage: DURATION TEXT: REMAINS AT 16 HOURS
     Route: 050
  7. CARBIDOPA\LEVODOPA [Suspect]
     Active Substance: CARBIDOPA\LEVODOPA
     Dosage: MD: 9.0 ML; CD: 4.1 ML/H; ED: 2.0 ML
     Dates: start: 20240327
  8. CARBIDOPA\LEVODOPA [Suspect]
     Active Substance: CARBIDOPA\LEVODOPA
     Dosage: MD 9.0 ML; CD 3.7 ML/H; ED 2.0 ML
     Route: 050
     Dates: start: 20230816, end: 20240109
  9. CARBIDOPA\LEVODOPA [Concomitant]
     Active Substance: CARBIDOPA\LEVODOPA
     Indication: Parkinson^s disease
     Route: 048
  10. CARBIDOPA\LEVODOPA [Concomitant]
     Active Substance: CARBIDOPA\LEVODOPA
     Indication: Parkinson^s disease
     Dosage: CONTROLLED RELEASE
     Route: 048
  11. CARBIDOPA\LEVODOPA [Concomitant]
     Active Substance: CARBIDOPA\LEVODOPA
     Indication: Parkinson^s disease
     Dosage: FREQUENCY TEXT: IF NEEDED
     Route: 048

REACTIONS (25)
  - Hip surgery [Recovering/Resolving]
  - Aphasia [Not Recovered/Not Resolved]
  - Fibroma [Not Recovered/Not Resolved]
  - Nocturia [Not Recovered/Not Resolved]
  - Dyskinesia [Recovering/Resolving]
  - Stoma site irritation [Not Recovered/Not Resolved]
  - Mobility decreased [Not Recovered/Not Resolved]
  - Stoma site pain [Not Recovered/Not Resolved]
  - Stoma site erythema [Not Recovered/Not Resolved]
  - Device dislocation [Recovered/Resolved]
  - Stoma site discharge [Not Recovered/Not Resolved]
  - Muscle rigidity [Not Recovered/Not Resolved]
  - Therapeutic response shortened [Recovered/Resolved]
  - Abnormal dreams [Not Recovered/Not Resolved]
  - Stress [Not Recovered/Not Resolved]
  - Memory impairment [Not Recovered/Not Resolved]
  - Weight increased [Not Recovered/Not Resolved]
  - Disturbance in attention [Not Recovered/Not Resolved]
  - Device dislocation [Not Recovered/Not Resolved]
  - Faeces hard [Not Recovered/Not Resolved]
  - On and off phenomenon [Recovered/Resolved]
  - Medical device site discharge [Recovered/Resolved]
  - Bradykinesia [Recovering/Resolving]
  - Tremor [Recovering/Resolving]
  - Loss of personal independence in daily activities [Not Recovered/Not Resolved]

NARRATIVE: CASE EVENT DATE: 20230329
